FAERS Safety Report 21049535 (Version 1)
Quarter: 2022Q3

REPORT INFORMATION
  Report Type: Spontaneous
  Country: US (occurrence: None)
  Receive Date: 20220706
  Receipt Date: 20220706
  Transmission Date: 20221027
  Serious: Yes (Disabling, Other)
  Sender: FDA-Public Use
  Company Number: None

PATIENT
  Age: 57 Year
  Sex: Female
  Weight: 103.5 kg

DRUGS (11)
  1. NEBIVOLOL HYDROCHLORIDE [Suspect]
     Active Substance: NEBIVOLOL HYDROCHLORIDE
     Indication: Hypertension
     Dosage: OTHER QUANTITY : 1 TABLET(S);?FREQUENCY : TWICE A DAY;?
     Route: 048
  2. Tresiba diabetes [Concomitant]
  3. VICTOZA [Concomitant]
     Active Substance: LIRAGLUTIDE
  4. METFORMIN [Concomitant]
     Active Substance: METFORMIN HYDROCHLORIDE
  5. Benazipril [Concomitant]
  6. NEBIVOLOL [Concomitant]
     Active Substance: NEBIVOLOL
  7. Atorvastation [Concomitant]
  8. UNSPECIFIED INGREDIENT [Concomitant]
     Active Substance: UNSPECIFIED INGREDIENT
  9. ASPIRIN [Concomitant]
     Active Substance: ASPIRIN
  10. FISH OIL [Concomitant]
  11. VITAMIN D3 [Concomitant]
     Active Substance: CHOLECALCIFEROL

REACTIONS (6)
  - Product substitution issue [None]
  - Therapeutic response changed [None]
  - Headache [None]
  - Blood pressure increased [None]
  - Product complaint [None]
  - Drug ineffective [None]

NARRATIVE: CASE EVENT DATE: 20220705
